FAERS Safety Report 5996717-8 (Version None)
Quarter: 2008Q4

REPORT INFORMATION
  Report Type: 
  Country: None (occurrence: None)
  Receive Date: 20081212
  Receipt Date: 20081022
  Transmission Date: 20090506
  Serious: No
  Sender: FDA-Public Use
  Company Number: US-ABBOTT-08P-163-0483455-00

PATIENT
  Sex: Female
  Weight: 70.37 kg

DRUGS (4)
  1. HUMIRA [Suspect]
     Indication: PSORIASIS
     Route: 058
     Dates: start: 20080601
  2. LITHIUM [Concomitant]
     Indication: BIPOLAR DISORDER
     Route: 048
  3. TOLTERODINE TARTRATE [Concomitant]
     Indication: INCONTINENCE
     Route: 048
  4. TOLTERODINE TARTRATE [Concomitant]
     Indication: PROPHYLAXIS

REACTIONS (2)
  - INCORRECT DOSE ADMINISTERED [None]
  - INJECTION SITE IRRITATION [None]
